FAERS Safety Report 24427327 (Version 1)
Quarter: 2024Q4

REPORT INFORMATION
  Report Type: Spontaneous
  Country: US (occurrence: US)
  Receive Date: 20241011
  Receipt Date: 20241011
  Transmission Date: 20250114
  Serious: Yes (Other)
  Sender: SANOFI AVENTIS
  Company Number: US-SANOFI-02240131

PATIENT

DRUGS (1)
  1. RENVELA [Suspect]
     Active Substance: SEVELAMER CARBONATE
     Indication: Chronic kidney disease
     Dosage: UNK
     Route: 065

REACTIONS (2)
  - Large intestinal ulcer [Unknown]
  - Crystal deposit intestine [Unknown]

NARRATIVE: CASE EVENT DATE: 20240101
